FAERS Safety Report 23753743 (Version 1)
Quarter: 2024Q2

REPORT INFORMATION
  Report Type: Report from Study
  Country: SI (occurrence: SI)
  Receive Date: 20240417
  Receipt Date: 20240417
  Transmission Date: 20240715
  Serious: Yes (Other)
  Sender: FDA-Public Use
  Company Number: SI-SUN PHARMACEUTICAL INDUSTRIES LTD-2024R1-441631

PATIENT

DRUGS (1)
  1. SUNITINIB [Suspect]
     Active Substance: SUNITINIB
     Indication: Metastatic renal cell carcinoma
     Dosage: UNK
     Route: 065

REACTIONS (1)
  - Shock haemorrhagic [Unknown]
